FAERS Safety Report 9781148 (Version 1)
Quarter: 2013Q4

REPORT INFORMATION
  Report Type: Spontaneous
  Country: US (occurrence: None)
  Receive Date: 20131220
  Receipt Date: 20131220
  Transmission Date: 20140711
  Serious: Yes (Hospitalization)
  Sender: FDA-Public Use
  Company Number: 2013P1021922

PATIENT
  Age: 47 Year
  Sex: Female
  Weight: 110 kg

DRUGS (1)
  1. AMLODIPINE [Suspect]
     Route: 048

REACTIONS (17)
  - Nodal rhythm [None]
  - Muscle contractions involuntary [None]
  - General physical health deterioration [None]
  - Haemodynamic instability [None]
  - Shock [None]
  - Metabolic acidosis [None]
  - Pleural effusion [None]
  - Hypoxia [None]
  - Overdose [None]
  - Toxicity to various agents [None]
  - Tachycardia [None]
  - Skin warm [None]
  - Blood glucose increased [None]
  - Anxiety [None]
  - Tongue disorder [None]
  - Hyperlipidaemia [None]
  - Blood ethanol increased [None]
